FAERS Safety Report 20516602 (Version 1)
Quarter: 2022Q1

REPORT INFORMATION
  Report Type: Spontaneous
  Country: FR (occurrence: FR)
  Receive Date: 20220225
  Receipt Date: 20220225
  Transmission Date: 20220423
  Serious: Yes (Other)
  Sender: FDA-Public Use
  Company Number: FR-ABBVIE-22K-056-4290212-00

PATIENT
  Sex: Female

DRUGS (4)
  1. VALPROATE SODIUM [Suspect]
     Active Substance: VALPROATE SODIUM
     Indication: Epilepsy
     Dosage: 1000MG/DAY
     Route: 065
     Dates: start: 20041026
  2. FOLIC ACID [Concomitant]
     Active Substance: FOLIC ACID
     Indication: Prophylaxis
  3. ATARAX [Concomitant]
     Active Substance: HYDROXYZINE HYDROCHLORIDE
     Indication: Product used for unknown indication
  4. CELESTENE [Concomitant]
     Indication: Product used for unknown indication

REACTIONS (13)
  - Retinal detachment [Unknown]
  - Guillain-Barre syndrome [Unknown]
  - Sickle cell disease [Unknown]
  - Hypertension [Unknown]
  - Proteinuria [Unknown]
  - Gestational diabetes [Unknown]
  - Cervical incompetence [Unknown]
  - Intermenstrual bleeding [Unknown]
  - Drug hypersensitivity [Unknown]
  - Amniotic cavity infection [Unknown]
  - Maternal exposure during pregnancy [Unknown]
  - Rubella [Unknown]
  - Live birth [Unknown]
